FAERS Safety Report 24052185 (Version 1)
Quarter: 2024Q3

REPORT INFORMATION
  Report Type: Spontaneous
  Country: PT (occurrence: PT)
  Receive Date: 20240704
  Receipt Date: 20240704
  Transmission Date: 20241017
  Serious: Yes (Life-Threatening, Hospitalization)
  Sender: JIANGSU HANSOH PHARMACEUTICAL
  Company Number: PT-Jiangsu Hansoh Pharmaceutical Co., Ltd-2158850

PATIENT
  Age: 47 Year
  Weight: 85 kg

DRUGS (6)
  1. VINORELBINE TARTRATE [Suspect]
     Active Substance: VINORELBINE TARTRATE
     Indication: Hodgkin^s disease
     Dates: start: 20240301, end: 20240427
  2. GEMCITABINE [Suspect]
     Active Substance: GEMCITABINE
     Dates: start: 20240301, end: 20240427
  3. ESCITALOPRAM [Concomitant]
     Active Substance: ESCITALOPRAM OXALATE
  4. OMEPRAZOLE [Concomitant]
     Active Substance: OMEPRAZOLE
  5. KEYTRUDA [Suspect]
     Active Substance: PEMBROLIZUMAB
     Route: 040
     Dates: start: 20240301, end: 20240427
  6. DOXORUBICIN [Suspect]
     Active Substance: DOXORUBICIN
     Dates: start: 20240301, end: 20240427

REACTIONS (1)
  - Pneumonitis [Recovering/Resolving]

NARRATIVE: CASE EVENT DATE: 20240416
